FAERS Safety Report 20775942 (Version 1)
Quarter: 2022Q2

REPORT INFORMATION
  Report Type: Spontaneous
  Country: US (occurrence: US)
  Receive Date: 20220502
  Receipt Date: 20220502
  Transmission Date: 20220720
  Serious: No
  Sender: FDA-Public Use
  Company Number: US-Accord-251438

PATIENT
  Sex: Male

DRUGS (1)
  1. FLUOROURACIL [Suspect]
     Active Substance: FLUOROURACIL
     Indication: Actinic keratosis
     Dosage: STRENGTH: 5%?DOSE: BID ON BOTH FOREARMS
     Route: 061
     Dates: start: 20211231, end: 20220118

REACTIONS (7)
  - Musculoskeletal stiffness [Not Recovered/Not Resolved]
  - Mobility decreased [Not Recovered/Not Resolved]
  - Pain [Not Recovered/Not Resolved]
  - Lymph node pain [Not Recovered/Not Resolved]
  - Application site vesicles [Not Recovered/Not Resolved]
  - Erythema [Not Recovered/Not Resolved]
  - Pruritus [Not Recovered/Not Resolved]
